FAERS Safety Report 14370110 (Version 2)
Quarter: 2018Q1

REPORT INFORMATION
  Report Type: Spontaneous
  Country: CA (occurrence: CA)
  Receive Date: 20180110
  Receipt Date: 20180118
  Transmission Date: 20180509
  Serious: Yes (Life-Threatening, Hospitalization, Other)
  Sender: FDA-Public Use
  Company Number: CA-APOTEX-2018AP005343

PATIENT
  Age: 66 Year
  Sex: Female

DRUGS (2)
  1. PIPERACILLIN AND TAZOBACTAM [Suspect]
     Active Substance: PIPERACILLIN SODIUM\TAZOBACTAM SODIUM
     Indication: CELLULITIS
     Route: 065
  2. VANCOMYCIN [Concomitant]
     Active Substance: VANCOMYCIN
     Indication: CELLULITIS
     Route: 065

REACTIONS (11)
  - Hypersensitivity [Unknown]
  - Hypercapnia [Recovered/Resolved]
  - Hypotension [Recovering/Resolving]
  - Blood creatinine increased [Recovering/Resolving]
  - Agitation [Recovering/Resolving]
  - Hepatic enzyme increased [Recovering/Resolving]
  - Acute generalised exanthematous pustulosis [Recovering/Resolving]
  - Confusional state [Recovering/Resolving]
  - Respiratory failure [Unknown]
  - Eosinophils urine present [Recovered/Resolved]
  - Disorientation [Recovering/Resolving]
